FAERS Safety Report 9203612 (Version 1)
Quarter: 2013Q2

REPORT INFORMATION
  Report Type: Spontaneous
  Country: FR (occurrence: FR)
  Receive Date: 20130402
  Receipt Date: 20130402
  Transmission Date: 20140414
  Serious: Yes (Hospitalization)
  Sender: FDA-Public Use
  Company Number: FR-BAYER-2013-040570

PATIENT
  Age: 40 Year
  Sex: Female

DRUGS (6)
  1. MIRENA [Suspect]
     Indication: CONTRACEPTION
     Dosage: 20 ?G, CONT
     Route: 015
  2. SERTRALINE [Concomitant]
     Route: 048
  3. CORTISONE [Concomitant]
     Indication: NECK PAIN
  4. CORTISONE [Concomitant]
     Indication: PRODUCTIVE COUGH
  5. ANTIBIOTICS [Concomitant]
     Indication: NECK PAIN
  6. ANTIBIOTICS [Concomitant]
     Indication: PRODUCTIVE COUGH

REACTIONS (1)
  - Cerebellar infarction [Recovered/Resolved with Sequelae]
